FAERS Safety Report 8021335-X (Version None)
Quarter: 2012Q1

REPORT INFORMATION
  Report Type: 
  Country: None (occurrence: None)
  Receive Date: 20120104
  Receipt Date: 20111224
  Transmission Date: 20120608
  Serious: Yes (Other)
  Sender: FDA-Public Use
  Company Number: US-BAYER-2011-049499

PATIENT
  Age: 25 Year
  Sex: Female

DRUGS (4)
  1. VITAMIN C [Concomitant]
     Dosage: UNK UNK, QD
     Dates: start: 20020101
  2. YAZ [Suspect]
     Indication: ORAL CONTRACEPTION
     Dosage: UNK UNK, QD
     Route: 048
     Dates: start: 20090304, end: 20090401
  3. LEVOTHYROXINE SODIUM [Concomitant]
     Dosage: UNK
     Dates: start: 20090101, end: 20110101
  4. IBUPROFEN [Concomitant]
     Dosage: UNK
     Dates: start: 20050101, end: 20110101

REACTIONS (9)
  - INJURY [None]
  - CHOLECYSTITIS CHRONIC [None]
  - ANXIETY [None]
  - ABDOMINAL PAIN [None]
  - CHOLELITHIASIS [None]
  - GASTRITIS [None]
  - EMOTIONAL DISTRESS [None]
  - PAIN [None]
  - GENERAL PHYSICAL HEALTH DETERIORATION [None]
